FAERS Safety Report 8591782-6 (Version None)
Quarter: 2012Q3

REPORT INFORMATION
  Report Type: 
  Country: None (occurrence: None)
  Receive Date: 20120814
  Receipt Date: 20120806
  Transmission Date: 20120928
  Serious: Yes (Death, Hospitalization)
  Sender: FDA-Public Use
  Company Number: PHHY2012IN069757

PATIENT
  Age: 68 Year
  Sex: Female

DRUGS (1)
  1. ZOLEDRONOC ACID [Suspect]
     Dosage: 5 MG/100 ML
     Route: 042
     Dates: start: 20120601

REACTIONS (4)
  - INTERVERTEBRAL DISC PROTRUSION [None]
  - OSTEOPOROTIC FRACTURE [None]
  - FRACTURE [None]
  - DEATH [None]
